FAERS Safety Report 4273099-3 (Version None)
Quarter: 2004Q1

REPORT INFORMATION
  Report Type: 
  Country: None (occurrence: None)
  Receive Date: 20040114
  Receipt Date: 20031229
  Transmission Date: 20041129
  Serious: Yes (Hospitalization)
  Sender: FDA-Public Use
  Company Number: DSA_23802_2004

PATIENT
  Age: 83 Year
  Sex: Female

DRUGS (8)
  1. CARDIZEM [Suspect]
     Indication: ANGINA PECTORIS
     Dosage: 240 MG 1 DAY PO
     Route: 048
     Dates: end: 20031101
  2. RENITEC [Concomitant]
  3. DIURAL [Concomitant]
  4. NITROGLYN [Concomitant]
  5. SOBRIL [Concomitant]
  6. LACTULOSE [Concomitant]
  7. ALBYL-E [Concomitant]
  8. IMOVANE [Concomitant]

REACTIONS (1)
  - SICK SINUS SYNDROME [None]
